FAERS Safety Report 6294221-3 (Version None)
Quarter: 2009Q3

REPORT INFORMATION
  Report Type: 
  Country: None (occurrence: None)
  Receive Date: 20090803
  Receipt Date: 20090313
  Transmission Date: 20100115
  Serious: No
  Sender: FDA-Public Use
  Company Number: A0773461A

PATIENT
  Age: 51 Year
  Sex: Female

DRUGS (2)
  1. NICORETTE [Suspect]
  2. NICORETTE [Suspect]

REACTIONS (3)
  - ABDOMINAL DISCOMFORT [None]
  - NICOTINE DEPENDENCE [None]
  - OROPHARYNGEAL BLISTERING [None]
